FAERS Safety Report 9703387 (Version 1)
Quarter: 2013Q4

REPORT INFORMATION
  Report Type: Report from Study
  Country: BR (occurrence: BR)
  Receive Date: 20131122
  Receipt Date: 20131122
  Transmission Date: 20140711
  Serious: Yes (Death)
  Sender: FDA-Public Use
  Company Number: PHHY2013BR133664

PATIENT
  Sex: Female
  Weight: 62 kg

DRUGS (4)
  1. FORASEQ [Suspect]
     Indication: LUNG NEOPLASM
     Dosage: 12 TO 12 HOURS
     Dates: start: 201308
  2. FORASEQ [Suspect]
     Indication: OFF LABEL USE
  3. ATROVENT [Concomitant]
     Indication: FATIGUE
     Dosage: UNK UKN, UNK
     Dates: start: 201308
  4. BEROTEC [Concomitant]
     Indication: FATIGUE
     Dosage: UNK UKN, UNK
     Dates: start: 201308

REACTIONS (4)
  - Lung neoplasm malignant [Fatal]
  - Hepatic cancer [Fatal]
  - Bone cancer [Fatal]
  - Renal cancer [Fatal]
